FAERS Safety Report 9219176 (Version 1)
Quarter: 2013Q2

REPORT INFORMATION
  Report Type: Spontaneous
  Country: US (occurrence: US)
  Receive Date: 20130409
  Receipt Date: 20130409
  Transmission Date: 20140414
  Serious: Yes (Other)
  Sender: FDA-Public Use
  Company Number: US-ELI_LILLY_AND_COMPANY-US201304000453

PATIENT
  Age: 69 Year
  Sex: Female

DRUGS (1)
  1. EVISTA [Suspect]
     Indication: OSTEOPENIA
     Dosage: 60 MG, QD
     Route: 065
     Dates: start: 201212

REACTIONS (4)
  - Migraine with aura [Unknown]
  - Pain [Not Recovered/Not Resolved]
  - Off label use [Unknown]
  - Hot flush [Not Recovered/Not Resolved]
